FAERS Safety Report 24348418 (Version 1)
Quarter: 2024Q3

REPORT INFORMATION
  Report Type: Spontaneous
  Country: CA (occurrence: CA)
  Receive Date: 20240923
  Receipt Date: 20240923
  Transmission Date: 20241017
  Serious: Yes (Other)
  Sender: CELLTRION
  Company Number: CA-PFIZER INC-202400254620

PATIENT

DRUGS (5)
  1. INFLECTRA [Suspect]
     Active Substance: INFLIXIMAB-DYYB
     Indication: Crohn^s disease
     Dosage: 10 MG/KG, FIRST INDUCTION DOSE, (700 MG,Q 0, 2, 6, THEN EVERY 8 WEEKSWEEK 0 AT HOSPITAL)
     Route: 042
     Dates: start: 20240828, end: 20240828
  2. INFLECTRA [Suspect]
     Active Substance: INFLIXIMAB-DYYB
     Dosage: UNK, INCOMPLETE DOSE (1 DF, DOSAGE INFO: INCOMPLETE INFUSION)
     Route: 042
     Dates: start: 20240912
  3. INFLECTRA [Suspect]
     Active Substance: INFLIXIMAB-DYYB
     Dosage: UNK, INCOMPLETE DOSE (1 DF, DOSAGE INFO: INCOMPLETE INFUSION)
     Route: 042
     Dates: start: 20240912
  4. INFLECTRA [Suspect]
     Active Substance: INFLIXIMAB-DYYB
     Dosage: UNK, INCOMPLETE DOSE (1 DF, DOSAGE INFO: INCOMPLETE INFUSION)
     Route: 042
     Dates: start: 20240912
  5. DIPHENHYDRAMINE [Concomitant]
     Active Substance: DIPHENHYDRAMINE
     Indication: Premedication
     Dosage: UNK
     Dates: start: 20240912, end: 20240912

REACTIONS (7)
  - Chest discomfort [Recovered/Resolved]
  - Feeling hot [Recovered/Resolved]
  - Dyspnoea [Recovered/Resolved]
  - Flushing [Recovered/Resolved]
  - Body temperature increased [Recovered/Resolved]
  - Blood pressure increased [Recovered/Resolved]
  - Off label use [Unknown]

NARRATIVE: CASE EVENT DATE: 20240828
